FAERS Safety Report 7570886-0 (Version None)
Quarter: 2011Q2

REPORT INFORMATION
  Report Type: 
  Country: None (occurrence: None)
  Receive Date: 20110620
  Receipt Date: 20110609
  Transmission Date: 20111010
  Serious: Yes (Death, Hospitalization)
  Sender: FDA-Public Use
  Company Number: 945934

PATIENT
  Age: 77 Year
  Sex: Male
  Weight: 105 kg

DRUGS (2)
  1. CYTARABINE [Suspect]
     Indication: ACUTE MYELOID LEUKAEMIA
     Dosage: 1505 MG, INTRAVENOUS
     Route: 042
     Dates: start: 20110519, end: 20110526
  2. DAUNORUBICIN HCL [Suspect]
     Indication: ACUTE MYELOID LEUKAEMIA
     Dosage: 390 MG
     Dates: start: 20110519, end: 20110521

REACTIONS (25)
  - SINUSITIS [None]
  - DYSPNOEA [None]
  - OSTEOARTHRITIS [None]
  - CEREBRAL HAEMORRHAGE [None]
  - CEREBROVASCULAR ACCIDENT [None]
  - HYPERTENSION [None]
  - PANCYTOPENIA [None]
  - LUNG INFILTRATION [None]
  - LACUNAR INFARCTION [None]
  - MENTAL STATUS CHANGES [None]
  - ACUTE RESPIRATORY DISTRESS SYNDROME [None]
  - CONTINUOUS HAEMODIAFILTRATION [None]
  - MEMORY IMPAIRMENT [None]
  - DELIRIUM [None]
  - SEPTIC SHOCK [None]
  - CEREBRAL ATROPHY [None]
  - RESPIRATORY FAILURE [None]
  - RENAL FAILURE ACUTE [None]
  - OSTEITIS [None]
  - GENERAL PHYSICAL HEALTH DETERIORATION [None]
  - HAEMODIALYSIS [None]
  - MULTI-ORGAN FAILURE [None]
  - ATRIAL FIBRILLATION [None]
  - SLEEP APNOEA SYNDROME [None]
  - PYREXIA [None]
